FAERS Safety Report 14508464 (Version 2)
Quarter: 2018Q2

REPORT INFORMATION
  Report Type: Spontaneous
  Country: DE (occurrence: DE)
  Receive Date: 20180209
  Receipt Date: 20180625
  Transmission Date: 20180711
  Serious: Yes (Hospitalization, Disabling)
  Sender: FDA-Public Use
  Company Number: DE-B.I. PHARMACEUTICALS,INC./RIDGEFIELD-2018-BI-006353

PATIENT
  Age: 59 Year
  Sex: Female
  Weight: 100 kg

DRUGS (14)
  1. ADUMBRAN [Concomitant]
     Active Substance: OXAZEPAM
     Indication: SLEEP DISORDER
  2. ADUMBRAN [Concomitant]
     Active Substance: OXAZEPAM
     Indication: RESTLESSNESS
     Route: 065
  3. DELIX [Concomitant]
     Active Substance: RAMIPRIL
     Indication: HYPERTENSION
     Route: 065
  4. OXYCODON [Concomitant]
     Active Substance: OXYCODONE
     Indication: PAIN
     Route: 065
     Dates: end: 20171125
  5. JARDIANCE [Suspect]
     Active Substance: EMPAGLIFLOZIN
     Indication: TYPE 2 DIABETES MELLITUS
     Route: 048
     Dates: end: 20171121
  6. ASS TAH [Concomitant]
     Indication: PLATELET AGGREGATION INHIBITION
     Route: 065
  7. ZINACEF [Concomitant]
     Active Substance: CEFUROXIME SODIUM
     Indication: ANTIBIOTIC THERAPY
     Route: 042
     Dates: start: 20171119, end: 20171121
  8. DIPIDOLOR [Concomitant]
     Active Substance: PIRITRAMIDE
     Indication: PAIN
     Route: 042
     Dates: end: 20171124
  9. METFORMIN [Concomitant]
     Active Substance: METFORMIN HYDROCHLORIDE
     Indication: TYPE 2 DIABETES MELLITUS
     Route: 065
     Dates: end: 20171117
  10. RINGERLOESUNG [Concomitant]
     Indication: HYPOVOLAEMIA
     Route: 042
  11. BENURON [Concomitant]
     Indication: PAIN
     Route: 065
  12. PANTOZOL [Concomitant]
     Active Substance: PANTOPRAZOLE SODIUM
     Indication: PROPHYLAXIS
     Route: 065
  13. CLEXANE [Concomitant]
     Active Substance: ENOXAPARIN SODIUM
     Indication: ANTICOAGULANT THERAPY
     Route: 058
  14. VICTOZA [Concomitant]
     Active Substance: LIRAGLUTIDE
     Indication: TYPE 2 DIABETES MELLITUS
     Route: 058
     Dates: start: 20171120, end: 20171120

REACTIONS (12)
  - Tibia fracture [Unknown]
  - Fall [Unknown]
  - Ankle fracture [Unknown]
  - Mucous membrane disorder [Unknown]
  - Somnolence [Unknown]
  - Urinary tract infection [Unknown]
  - Tachypnoea [Unknown]
  - Tachycardia [Unknown]
  - Hyperglycaemia [Unknown]
  - Pneumonia [Unknown]
  - Metabolic acidosis [Recovered/Resolved]
  - Hyperkalaemia [Unknown]

NARRATIVE: CASE EVENT DATE: 20171117
